FAERS Safety Report 6461236-1 (Version None)
Quarter: 2009Q4

REPORT INFORMATION
  Report Type: 
  Country: None (occurrence: None)
  Receive Date: 20091123
  Receipt Date: 20091117
  Transmission Date: 20100525
  Serious: Yes (Other)
  Sender: FDA-Public Use
  Company Number: DE-1171038

PATIENT
  Age: 76 Year
  Sex: Female

DRUGS (4)
  1. FLUORESCEIN SODIUM (FLUDUORESCEIN SODIUM) 10 % INJECTION LOT# 163265F [Suspect]
     Dosage: 4 ML INTRAVENOUS BOLUS
     Route: 040
     Dates: start: 20090922, end: 20090922
  2. SIMVASTATIN [Concomitant]
  3. ENALAPRIL MALEATE [Concomitant]
  4. LEVOTHYROXINE SODIUM [Concomitant]

REACTIONS (6)
  - CHILLS [None]
  - DRUG HYPERSENSITIVITY [None]
  - DYSPNOEA [None]
  - FATIGUE [None]
  - SHOCK [None]
  - UNRESPONSIVE TO STIMULI [None]
